FAERS Safety Report 8198310-8 (Version None)
Quarter: 2012Q1

REPORT INFORMATION
  Report Type: 
  Country: None (occurrence: None)
  Receive Date: 20120309
  Receipt Date: 20120307
  Transmission Date: 20120608
  Serious: Yes (Other)
  Sender: FDA-Public Use
  Company Number: US-MERCK-1103USA01430

PATIENT
  Age: 66 Year
  Sex: Female

DRUGS (2)
  1. FOSAMAX [Suspect]
     Route: 048
     Dates: end: 20080301
  2. FOSAMAX [Suspect]
     Route: 048
     Dates: start: 20080428, end: 20090101

REACTIONS (2)
  - DEVICE FAILURE [None]
  - FEMUR FRACTURE [None]
